FAERS Safety Report 14394524 (Version 1)
Quarter: 2018Q1

REPORT INFORMATION
  Report Type: Spontaneous
  Country: CO (occurrence: CO)
  Receive Date: 20180116
  Receipt Date: 20180116
  Transmission Date: 20180509
  Serious: Yes (Death)
  Sender: FDA-Public Use
  Company Number: PHHY2018CO005568

PATIENT
  Age: 40 Year
  Sex: Female

DRUGS (2)
  1. TACROLIMUS. [Suspect]
     Active Substance: TACROLIMUS
     Indication: LIVER TRANSPLANT
     Dosage: 3 MG, Q12H
     Route: 065
  2. TACROLIMUS. [Suspect]
     Active Substance: TACROLIMUS
     Indication: IMMUNOSUPPRESSANT DRUG THERAPY

REACTIONS (14)
  - Quadriparesis [Fatal]
  - Confusional state [Fatal]
  - Hyperreflexia [Fatal]
  - Extensor plantar response [Fatal]
  - Somnolence [Fatal]
  - Osmotic demyelination syndrome [Fatal]
  - Disorientation [Fatal]
  - Generalised tonic-clonic seizure [Fatal]
  - Mydriasis [Fatal]
  - Gaze palsy [Fatal]
  - Stupor [Fatal]
  - Coma [Fatal]
  - Bradyphrenia [Fatal]
  - Hypotonia [Fatal]
